FAERS Safety Report 15415151 (Version 1)
Quarter: 2018Q3

REPORT INFORMATION
  Report Type: Other
  Country: US (occurrence: US)
  Receive Date: 20180921
  Receipt Date: 20180921
  Transmission Date: 20181010
  Serious: No
  Sender: FDA-Public Use
  Company Number: US-FRESENIUS MEDICAL CARE RENAL THERAPIES GROUP-FMC-1809-001682

PATIENT
  Age: 32 Year
  Sex: Male

DRUGS (2)
  1. PHOSLO [Suspect]
     Active Substance: CALCIUM ACETATE
     Indication: BLOOD PHOSPHORUS
     Dosage: 2 YEARS
     Dates: start: 2016
  2. CINACALCET. [Concomitant]
     Active Substance: CINACALCET
     Dosage: 2 YEARS
     Dates: start: 2016

REACTIONS (1)
  - Calcinosis [Unknown]
